FAERS Safety Report 15288538 (Version 1)
Quarter: 2018Q3

REPORT INFORMATION
  Report Type: Spontaneous
  Country: US (occurrence: US)
  Receive Date: 20180802
  Receipt Date: 20180802
  Transmission Date: 20181010
  Serious: Yes (Other)
  Sender: FDA-Public Use
  Company Number: None

PATIENT
  Age: 67 Year
  Sex: Female
  Weight: 89.2 kg

DRUGS (13)
  1. ACYCLOVIR 400MG [Concomitant]
  2. FLUOXETINE [Concomitant]
     Active Substance: FLUOXETINE HYDROCHLORIDE
  3. FLUOXETINE [Concomitant]
     Active Substance: FLUOXETINE HYDROCHLORIDE
  4. HYDROMORPHONE [Concomitant]
     Active Substance: HYDROMORPHONE
  5. ASPIRIN. [Concomitant]
     Active Substance: ASPIRIN
  6. PREDNISOLONE. [Concomitant]
     Active Substance: PREDNISOLONE
  7. POMALIDOMIDE [Suspect]
     Active Substance: POMALIDOMIDE
     Indication: PLASMA CELL MYELOMA
     Route: 048
     Dates: start: 20180501, end: 20180525
  8. POLYMYXIN?TRIMETHOPRIM [Concomitant]
  9. LACTOBACILLUS [Concomitant]
     Active Substance: LACTOBACILLUS ACIDOPHILUS
  10. MULTIVITAMIN [Concomitant]
     Active Substance: VITAMINS
  11. POMALIDOMIDE [Concomitant]
     Active Substance: POMALIDOMIDE
  12. AMOXICILLIN. [Concomitant]
     Active Substance: AMOXICILLIN
  13. DEXAMETHASONE. [Concomitant]
     Active Substance: DEXAMETHASONE

REACTIONS (3)
  - Atrial fibrillation [None]
  - Thyroiditis [None]
  - Hyperthyroidism [None]

NARRATIVE: CASE EVENT DATE: 20180516
